FAERS Safety Report 8021344-0 (Version None)
Quarter: 2011Q4

REPORT INFORMATION
  Report Type: 
  Country: None (occurrence: None)
  Receive Date: 20111229
  Receipt Date: 20111220
  Transmission Date: 20120403
  Serious: Yes (Other)
  Sender: FDA-Public Use
  Company Number: 1000026463

PATIENT
  Age: 25 Year
  Sex: Male

DRUGS (2)
  1. VIIBRYD [Suspect]
     Dosage: 10 MG (10 MG, 1 I N1 D), ORAL
     Route: 048
  2. VIIBRYD [Suspect]
     Dosage: 40 MG (40 MG, 1 IN 1 D), ORAL
     Route: 048

REACTIONS (2)
  - LOSS OF EMPLOYMENT [None]
  - AGGRESSION [None]
